FAERS Safety Report 4869162-6 (Version None)
Quarter: 2005Q4

REPORT INFORMATION
  Report Type: 
  Country: None (occurrence: None)
  Receive Date: 20051227
  Receipt Date: 20051219
  Transmission Date: 20060501
  Serious: Yes (Life-Threatening, Other)
  Sender: FDA-Public Use
  Company Number: HQWYE088319DEC05

PATIENT
  Age: 55 Year
  Sex: Male

DRUGS (10)
  1. EFFEXOR [Suspect]
     Indication: DEPRESSION
     Dosage: 1 TABLET
     Route: 048
     Dates: start: 20051009, end: 20051113
  2. FORTUM (CEFTAZIDIME PENTAHYDRATE, ) [Suspect]
     Indication: PYREXIA
     Dosage: 3 G
     Route: 042
     Dates: start: 20051025, end: 20051113
  3. AMITRIPTYLINE HCL [Suspect]
     Indication: PAIN
     Dosage: 50 MG
     Route: 048
     Dates: start: 20050923, end: 20051113
  4. NEURONTIN [Suspect]
     Indication: PAIN
     Dosage: 3 TABLETS
     Route: 048
     Dates: start: 20050923, end: 20051113
  5. POSACONAZOLE [Suspect]
     Indication: BRONCHOPULMONARY ASPERGILLOSIS
     Dosage: 400 MG 2X PER 1 DAY
     Route: 048
     Dates: start: 20051021, end: 20051115
  6. LEVOFLOXACIN [Suspect]
     Indication: PYREXIA
     Dosage: 1 TABLET
     Route: 048
     Dates: start: 20051023, end: 20051113
  7. TOPALGIC (TRAMADOL HYDROCHLORIDE, ) [Suspect]
     Indication: PAIN
     Dosage: 1 TABLET
     Route: 048
     Dates: start: 20051009, end: 20051113
  8. XANAX [Suspect]
     Indication: ANXIETY
     Dosage: 3 TABLETS
     Route: 048
     Dates: start: 20051014, end: 20051113
  9. NEXIUM [Concomitant]
  10. HEPARIN [Concomitant]

REACTIONS (4)
  - CYTOLYTIC HEPATITIS [None]
  - HEPATIC CANDIDIASIS [None]
  - RENAL FAILURE [None]
  - SPLENIC CANDIDIASIS [None]
